FAERS Safety Report 22307329 (Version 1)
Quarter: 2023Q2

REPORT INFORMATION
  Report Type: Spontaneous
  Country: US (occurrence: None)
  Receive Date: 20230511
  Receipt Date: 20230511
  Transmission Date: 20230722
  Serious: No
  Sender: FDA-Public Use
  Company Number: US-ROCHE-3087805

PATIENT
  Age: 60 Year
  Sex: Female
  Weight: 73.5 kg

DRUGS (1)
  1. OCREVUS [Suspect]
     Active Substance: OCRELIZUMAB
     Indication: Multiple sclerosis
     Dosage: LAST DOSE WAS -MAY-2021 BUT PATIENT WILL BE RESTARTING ;ONGOING: YES
     Route: 042
     Dates: start: 202008

REACTIONS (2)
  - Urinary tract infection [Recovered/Resolved]
  - Immune system disorder [Recovered/Resolved]

NARRATIVE: CASE EVENT DATE: 20211201
